FAERS Safety Report 7758060-6 (Version None)
Quarter: 2011Q3

REPORT INFORMATION
  Report Type: 
  Country: None (occurrence: None)
  Receive Date: 20110919
  Receipt Date: 20110912
  Transmission Date: 20111222
  Serious: No
  Sender: FDA-Public Use
  Company Number: US-BIOGENIDEC-2011BI035020

PATIENT
  Age: 40 Year
  Sex: Female

DRUGS (2)
  1. TYSABRI [Suspect]
     Indication: MULTIPLE SCLEROSIS
     Route: 042
     Dates: start: 20090326
  2. MEDICATION (NOS) [Concomitant]
     Indication: PREMEDICATION

REACTIONS (3)
  - ADVERSE REACTION [None]
  - URTICARIA [None]
  - PRURITUS [None]
